FAERS Safety Report 19684128 (Version 3)
Quarter: 2021Q4

REPORT INFORMATION
  Report Type: Spontaneous
  Country: CA (occurrence: CA)
  Receive Date: 20210811
  Receipt Date: 20211229
  Transmission Date: 20220303
  Serious: Yes (Other)
  Sender: FDA-Public Use
  Company Number: CA-MLMSERVICE-20210730-3026387-1

PATIENT
  Age: 44 Year
  Sex: Female

DRUGS (17)
  1. MOXIFLOXACIN [Suspect]
     Active Substance: MOXIFLOXACIN
     Indication: Disseminated mycobacterium avium complex infection
     Dosage: UNK
     Route: 065
  2. MOXIFLOXACIN [Suspect]
     Active Substance: MOXIFLOXACIN
     Indication: Pancytopenia
  3. MOXIFLOXACIN [Suspect]
     Active Substance: MOXIFLOXACIN
     Indication: Lymphadenopathy
  4. MOXIFLOXACIN [Suspect]
     Active Substance: MOXIFLOXACIN
     Indication: Hepatic enzyme increased
  5. AZITHROMYCIN [Suspect]
     Active Substance: AZITHROMYCIN
     Indication: Pancytopenia
     Dosage: UNK
     Route: 065
  6. AZITHROMYCIN [Suspect]
     Active Substance: AZITHROMYCIN
     Indication: Lymphadenopathy
  7. AZITHROMYCIN [Suspect]
     Active Substance: AZITHROMYCIN
     Indication: Hepatic enzyme increased
  8. AZITHROMYCIN [Suspect]
     Active Substance: AZITHROMYCIN
     Indication: Disseminated mycobacterium avium complex infection
  9. RIFABUTIN [Suspect]
     Active Substance: RIFABUTIN
     Indication: Disseminated mycobacterium avium complex infection
     Dosage: UNK
     Route: 065
  10. RIFABUTIN [Suspect]
     Active Substance: RIFABUTIN
     Indication: Pancytopenia
  11. RIFABUTIN [Suspect]
     Active Substance: RIFABUTIN
     Indication: Lymphadenopathy
  12. RIFABUTIN [Suspect]
     Active Substance: RIFABUTIN
     Indication: Hepatic enzyme increased
  13. ETHAMBUTOL [Suspect]
     Active Substance: ETHAMBUTOL HYDROCHLORIDE
     Indication: Disseminated mycobacterium avium complex infection
     Dosage: UNK
     Route: 065
  14. ETHAMBUTOL [Suspect]
     Active Substance: ETHAMBUTOL HYDROCHLORIDE
     Indication: Pancytopenia
  15. ETHAMBUTOL [Suspect]
     Active Substance: ETHAMBUTOL HYDROCHLORIDE
     Indication: Lymphadenopathy
  16. ETHAMBUTOL [Suspect]
     Active Substance: ETHAMBUTOL HYDROCHLORIDE
     Indication: Hepatic enzyme increased
  17. RITUXIMAB [Concomitant]
     Active Substance: RITUXIMAB
     Indication: Disseminated mycobacterium avium complex infection
     Dosage: 375.0 MILLIEQUIVALENT PER SQUARE METRE, ONCE A MONTH
     Route: 065

REACTIONS (3)
  - Toxicity to various agents [Unknown]
  - Disseminated mycobacterium avium complex infection [Unknown]
  - Drug ineffective [Unknown]
